FAERS Safety Report 7264596-7 (Version None)
Quarter: 2011Q1

REPORT INFORMATION
  Report Type: 
  Country: None (occurrence: None)
  Receive Date: 20110131
  Receipt Date: 20110125
  Transmission Date: 20110831
  Serious: No
  Sender: FDA-Public Use
  Company Number: US-PFIZER INC-2011018090

PATIENT
  Sex: Male
  Weight: 87.528 kg

DRUGS (4)
  1. PAXIL [Concomitant]
     Dosage: UNK
  2. ACETYLSALICYLIC ACID [Concomitant]
     Dosage: 81 MG, UNK
  3. LIPITOR [Suspect]
     Indication: BLOOD CHOLESTEROL INCREASED
     Dosage: 40 MG, DAILY
     Route: 048
  4. LIPITOR [Suspect]
     Dosage: 80MG, UNK

REACTIONS (2)
  - DIARRHOEA [None]
  - BLOOD CHOLESTEROL ABNORMAL [None]
